FAERS Safety Report 16681888 (Version 9)
Quarter: 2021Q4

REPORT INFORMATION
  Report Type: Other
  Country: FR (occurrence: FR)
  Receive Date: 20190808
  Receipt Date: 20211015
  Transmission Date: 20220303
  Serious: Yes (Death, Hospitalization)
  Sender: FDA-Public Use
  Company Number: FR-ROCHE-2371259

PATIENT
  Age: 57 Year
  Sex: Male
  Weight: 66 kg

DRUGS (28)
  1. ATEZOLIZUMAB [Suspect]
     Active Substance: ATEZOLIZUMAB
     Indication: Non-small cell lung cancer metastatic
     Dosage: SUBSEQUENT DOSES ON: 19/JUL/2019 AND 09/AUG/2019
     Route: 041
     Dates: start: 20190628
  2. GABAPENTIN [Concomitant]
     Active Substance: GABAPENTIN
     Indication: Cervicobrachial syndrome
  3. METHYLPREDNISOLONE [Concomitant]
     Active Substance: METHYLPREDNISOLONE
     Dates: start: 20190905, end: 20190917
  4. METHYLPREDNISOLONE [Concomitant]
     Active Substance: METHYLPREDNISOLONE
     Dates: start: 20190729, end: 20190731
  5. MORPHINE [Concomitant]
     Active Substance: MORPHINE
     Indication: Cervicobrachial syndrome
  6. ZICONOTIDE ACETATE [Concomitant]
     Active Substance: ZICONOTIDE ACETATE
     Indication: Cervicobrachial syndrome
  7. ROPIVACAINE HYDROCHLORIDE [Concomitant]
     Active Substance: ROPIVACAINE HYDROCHLORIDE
     Indication: Cervicobrachial syndrome
  8. FUROSEMIDE [Concomitant]
     Active Substance: FUROSEMIDE
     Dates: start: 20190731, end: 20190819
  9. AMITRIPTYLINE [Concomitant]
     Active Substance: AMITRIPTYLINE
     Indication: Anxiety
     Dates: end: 20190913
  10. MOVICOL [Concomitant]
     Active Substance: POLYETHYLENE GLYCOL 3350\POTASSIUM CHLORIDE\SODIUM BICARBONATE\SODIUM CHLORIDE
     Indication: Constipation
     Dates: start: 20190801, end: 20190913
  11. ACETAMINOPHEN [Concomitant]
     Active Substance: ACETAMINOPHEN
     Indication: Musculoskeletal chest pain
     Dates: end: 20190913
  12. ACETAMINOPHEN [Concomitant]
     Active Substance: ACETAMINOPHEN
     Indication: Cervicobrachial syndrome
  13. ALFUZOSIN [Concomitant]
     Active Substance: ALFUZOSIN
     Dates: start: 20190729, end: 20190913
  14. LEVOTHYROXINE [Concomitant]
     Active Substance: LEVOTHYROXINE
     Indication: Hypothyroidism
     Dates: start: 20190807, end: 20190913
  15. HYDROCORTISONE [Concomitant]
     Active Substance: HYDROCORTISONE
     Indication: Cortisol decreased
     Dates: start: 20190808
  16. ALPRAZOLAM [Concomitant]
     Active Substance: ALPRAZOLAM
     Indication: Anxiety
     Dates: start: 20190905, end: 20190910
  17. MIDAZOLAM [Concomitant]
     Active Substance: MIDAZOLAM
     Indication: Confusional state
     Dates: start: 20190908, end: 20190917
  18. CYAMEMAZINE [Concomitant]
     Active Substance: CYAMEMAZINE
     Indication: Anxiety
     Dates: start: 20190909, end: 20190910
  19. ALBUTEROL [Concomitant]
     Active Substance: ALBUTEROL
     Indication: Dyspnoea
     Dates: start: 20190905, end: 20190915
  20. ZOLEDRONIC ACID [Concomitant]
     Active Substance: ZOLEDRONIC ACID
     Indication: Metastases to bone
     Dates: start: 20190905
  21. ENOXAPARIN SODIUM [Concomitant]
     Active Substance: ENOXAPARIN SODIUM
     Dates: start: 20190905, end: 20190913
  22. BUTYLSCOPOLAMINE [Concomitant]
     Active Substance: BUTYLSCOPOLAMINE
     Dates: start: 20190912, end: 20190918
  23. DEXTROSE\POTASSIUM CHLORIDE\SODIUM CHLORIDE [Concomitant]
     Active Substance: DEXTROSE\POTASSIUM CHLORIDE\SODIUM CHLORIDE
     Dates: start: 20190904, end: 20190915
  24. RISPERIDONE [Concomitant]
     Active Substance: RISPERIDONE
     Indication: Confusional state
     Dates: start: 20190906
  25. CHLORPROMAZINE [Concomitant]
     Active Substance: CHLORPROMAZINE
     Indication: Confusional state
     Dates: start: 20190910
  26. CISPLATIN [Concomitant]
     Active Substance: CISPLATIN
     Indication: Neoplasm malignant
  27. BEVACIZUMAB [Concomitant]
     Active Substance: BEVACIZUMAB
     Indication: Neoplasm malignant
  28. PEMETREXED [Concomitant]
     Active Substance: PEMETREXED
     Indication: Neoplasm malignant

REACTIONS (3)
  - Syncope [Recovered/Resolved]
  - Confusional state [Not Recovered/Not Resolved]
  - Hypothyroidism [Recovered/Resolved]

NARRATIVE: CASE EVENT DATE: 20190728
